FAERS Safety Report 4666030-X (Version None)
Quarter: 2005Q2

REPORT INFORMATION
  Report Type: 
  Country: None (occurrence: None)
  Receive Date: 20050517
  Receipt Date: 20050517
  Transmission Date: 20051028
  Serious: Yes (Death, Life-Threatening, Hospitalization)
  Sender: FDA-Public Use
  Company Number: None

PATIENT
  Sex: Male
  Weight: 78.7 kg

DRUGS (2)
  1. IRESSA [Suspect]
     Indication: COLON CANCER
     Dosage: 250 MG QD ORAL
     Route: 048
     Dates: start: 20050331, end: 20050421
  2. CPT-11  125 MG/M2  PFIZER [Suspect]
     Indication: COLON CANCER
     Dosage: 125 MG/M2 2 DOSES GIVEN INTRAVENOUS
     Route: 042
     Dates: start: 20050401, end: 20050408

REACTIONS (9)
  - ABDOMINAL PAIN [None]
  - BACK PAIN [None]
  - CONFUSIONAL STATE [None]
  - DISEASE PROGRESSION [None]
  - DRY MOUTH [None]
  - DYSPNOEA [None]
  - INITIAL INSOMNIA [None]
  - INTESTINAL OBSTRUCTION [None]
  - PERFORMANCE STATUS DECREASED [None]
